FAERS Safety Report 7307767-3 (Version None)
Quarter: 2011Q1

REPORT INFORMATION
  Report Type: 
  Country: None (occurrence: None)
  Receive Date: 20110223
  Receipt Date: 20101101
  Transmission Date: 20110831
  Serious: No
  Sender: FDA-Public Use
  Company Number: US-BAYER-201023415BCC

PATIENT
  Sex: Female
  Weight: 74.83 kg

DRUGS (4)
  1. ALEVE [Suspect]
     Indication: ARTHRITIS
     Dosage: BOTTLE COUNT 40CT
     Route: 048
  2. ALEVE [Suspect]
     Indication: ARTHRITIS
     Dosage: BOTTLE COUNT 100S
     Route: 048
  3. CENTRUM SILVER [Concomitant]
     Dosage: 1 DF, QD
  4. CRESTOR [Concomitant]

REACTIONS (1)
  - CONSTIPATION [None]
